FAERS Safety Report 10190626 (Version 1)
Quarter: 2014Q2

REPORT INFORMATION
  Report Type: Spontaneous
  Country: US (occurrence: US)
  Receive Date: 20140523
  Receipt Date: 20140523
  Transmission Date: 20141212
  Serious: Yes (Other)
  Sender: FDA-Public Use
  Company Number: US-009507513-1405USA009034

PATIENT
  Age: 23 Year
  Sex: Female

DRUGS (1)
  1. NEXPLANON [Suspect]
     Indication: CONTRACEPTION
     Dosage: 1 UNK, UNK
     Route: 059

REACTIONS (42)
  - Blindness [Unknown]
  - Aphonia [Unknown]
  - Hypersensitivity [Unknown]
  - Headache [Unknown]
  - Vaginal inflammation [Unknown]
  - Weight increased [Unknown]
  - Acne [Unknown]
  - Breast enlargement [Unknown]
  - Viral pharyngitis [Unknown]
  - Influenza like illness [Unknown]
  - Abdominal pain upper [Unknown]
  - Dysmenorrhoea [Unknown]
  - Mood altered [Unknown]
  - Nervousness [Unknown]
  - Depressed mood [Unknown]
  - Back pain [Unknown]
  - Nausea [Unknown]
  - Dizziness [Unknown]
  - Pain [Unknown]
  - Implant site pain [Unknown]
  - Pain in extremity [Unknown]
  - Chest pain [Unknown]
  - Chest discomfort [Unknown]
  - Dyspnoea [Unknown]
  - Haemoptysis [Unknown]
  - Urticaria [Unknown]
  - Dyspnoea [Unknown]
  - Headache [Unknown]
  - Muscular weakness [Unknown]
  - Hypoaesthesia [Unknown]
  - Yellow skin [Unknown]
  - Scleral discolouration [Unknown]
  - Fatigue [Unknown]
  - Decreased appetite [Unknown]
  - Chromaturia [Unknown]
  - Faeces pale [Unknown]
  - Abdominal pain lower [Unknown]
  - Abdominal distension [Unknown]
  - Abdominal tenderness [Unknown]
  - Breast mass [Unknown]
  - Sleep disorder [Unknown]
  - Menorrhagia [Unknown]
